FAERS Safety Report 20747823 (Version 1)
Quarter: 2022Q2

REPORT INFORMATION
  Report Type: Report from Study
  Country: JP (occurrence: JP)
  Receive Date: 20220425
  Receipt Date: 20220425
  Transmission Date: 20220721
  Serious: Yes (Other)
  Sender: FDA-Public Use
  Company Number: JP-BRISTOL-MYERS SQUIBB COMPANY-2022-026644

PATIENT
  Age: 54 Year
  Sex: Female

DRUGS (7)
  1. ABATACEPT [Suspect]
     Active Substance: ABATACEPT
     Indication: Rheumatoid arthritis
     Dosage: LOADING
     Route: 042
  2. ABATACEPT [Suspect]
     Active Substance: ABATACEPT
     Dosage: LOADING
     Route: 042
     Dates: start: 20180424, end: 20180424
  3. ABATACEPT [Suspect]
     Active Substance: ABATACEPT
     Route: 058
     Dates: start: 20180424, end: 20180911
  4. ABATACEPT [Suspect]
     Active Substance: ABATACEPT
     Route: 058
     Dates: start: 20180918, end: 20190211
  5. ABATACEPT [Suspect]
     Active Substance: ABATACEPT
     Route: 058
     Dates: start: 20190219, end: 20201027
  6. ABATACEPT [Suspect]
     Active Substance: ABATACEPT
     Route: 058
     Dates: start: 20201103, end: 20210406
  7. ABATACEPT [Suspect]
     Active Substance: ABATACEPT
     Route: 058
     Dates: start: 20210420

REACTIONS (2)
  - Cholelithiasis [Recovering/Resolving]
  - Cholangitis [Recovering/Resolving]

NARRATIVE: CASE EVENT DATE: 20220316
